FAERS Safety Report 10082634 (Version 1)
Quarter: 2014Q2

REPORT INFORMATION
  Report Type: Spontaneous
  Country: GB (occurrence: GB)
  Receive Date: 20140416
  Receipt Date: 20140416
  Transmission Date: 20141212
  Serious: Yes (Hospitalization)
  Sender: FDA-Public Use
  Company Number: GB-MYLANLABS-2014S1008158

PATIENT
  Age: 30 Year
  Sex: Female

DRUGS (17)
  1. PREDNISOLONE [Suspect]
     Indication: ERYTHEMA MULTIFORME
     Dosage: 40MG DAILY, THEN TAPERING DOSE
     Route: 065
     Dates: start: 201106
  2. PREDNISOLONE [Suspect]
     Indication: ERYTHEMA MULTIFORME
     Dosage: 60MG, THEN TAPERING DOSE
     Route: 065
     Dates: start: 201108
  3. CICLOSPORIN [Suspect]
     Indication: ERYTHEMA MULTIFORME
     Dosage: 2.5 MG/KG
     Route: 065
     Dates: start: 201109, end: 201202
  4. CICLOSPORIN [Suspect]
     Indication: OFF LABEL USE
     Dosage: 2.5 MG/KG
     Route: 065
     Dates: start: 201109, end: 201202
  5. CICLOSPORIN [Suspect]
     Indication: ERYTHEMA MULTIFORME
     Dosage: 5 MG/KG
     Route: 065
     Dates: start: 201109, end: 201202
  6. CICLOSPORIN [Suspect]
     Indication: OFF LABEL USE
     Dosage: 5 MG/KG
     Route: 065
     Dates: start: 201109, end: 201202
  7. AZATHIOPRINE [Suspect]
     Indication: ERYTHEMA MULTIFORME
     Dosage: 1MG; INCREASED TO 2MG/KG OVER 2 MONTHS
     Route: 065
  8. AZATHIOPRINE [Suspect]
     Indication: OFF LABEL USE
     Dosage: 1MG; INCREASED TO 2MG/KG OVER 2 MONTHS
     Route: 065
  9. AZATHIOPRINE [Suspect]
     Indication: ERYTHEMA MULTIFORME
     Dosage: 2MG/KG
     Route: 065
  10. AZATHIOPRINE [Suspect]
     Indication: OFF LABEL USE
     Dosage: 2MG/KG
     Route: 065
  11. GANCICLOVIR [Suspect]
     Indication: ERYTHEMA MULTIFORME
     Dosage: 14-DAY INDUCTION DOSE
     Route: 042
     Dates: start: 201205
  12. VALGANCICLOVIR [Suspect]
     Indication: ERYTHEMA MULTIFORME
     Dosage: 450MG DAILY
     Route: 048
  13. TRAMADOL [Concomitant]
     Indication: BACK PAIN
     Route: 065
  14. ACICLOVIR [Concomitant]
     Indication: ERYTHEMA MULTIFORME
     Dosage: 5 MG/KG
     Route: 042
     Dates: start: 201108
  15. ACICLOVIR [Concomitant]
     Indication: ERYTHEMA MULTIFORME
     Dosage: 5 MG/KG
     Route: 048
     Dates: start: 201108
  16. FAMCICLOVIR [Concomitant]
     Indication: ERYTHEMA MULTIFORME
     Route: 065
     Dates: start: 201202
  17. CLOBETASOL [Concomitant]
     Indication: ERYTHEMA MULTIFORME
     Dosage: 0.1% CLOBETASOL
     Route: 061
     Dates: start: 201108

REACTIONS (4)
  - Erythema multiforme [Recovering/Resolving]
  - Hypertrichosis [Unknown]
  - Hypertension [Unknown]
  - Aplasia pure red cell [Recovered/Resolved]
